FAERS Safety Report 18289942 (Version 1)
Quarter: 2020Q3

REPORT INFORMATION
  Report Type: Spontaneous
  Country: QA (occurrence: QA)
  Receive Date: 20200921
  Receipt Date: 20200921
  Transmission Date: 20201103
  Serious: Yes (Hospitalization)
  Sender: FDA-Public Use
  Company Number: QA-AMNEAL PHARMACEUTICALS-2020-AMRX-02879

PATIENT
  Age: 33 Year
  Sex: Male

DRUGS (8)
  1. METHITEST [Suspect]
     Active Substance: METHYLTESTOSTERONE
     Indication: MUSCLE BUILDING THERAPY
     Dosage: 1 COURSE AS 100 TO 200MG DAILY FOR 90 DAYS (TOTAL 5 COURSES)
     Route: 065
     Dates: end: 201905
  2. TRENBOLONE ACETATE [Suspect]
     Active Substance: TRENBOLONE ACETATE
     Indication: STEROID THERAPY
  3. METANDIENONE [Concomitant]
     Active Substance: METHANDROSTENOLONE
     Indication: PRODUCT USED FOR UNKNOWN INDICATION
     Dosage: 20 MILLIGRAM, DAILY
     Route: 065
  4. TRENBOLONE ACETATE [Suspect]
     Active Substance: TRENBOLONE ACETATE
     Indication: MUSCLE BUILDING THERAPY
     Dosage: 1 COURSE AS 100 TO 200MG DAILY FOR 90 DAYS (TOTAL 5 COURSES)
     Route: 065
     Dates: end: 201905
  5. TESTOSTERONE CYPIONATE. [Suspect]
     Active Substance: TESTOSTERONE CYPIONATE
     Indication: MUSCLE BUILDING THERAPY
     Dosage: 1 COURSE AS 100 TO 200MG DAILY FOR 90 DAYS (TOTAL 5 COURSES)
     Route: 065
     Dates: end: 201905
  6. TESTOSTERONE CYPIONATE. [Suspect]
     Active Substance: TESTOSTERONE CYPIONATE
     Indication: STEROID THERAPY
  7. TADALAFIL. [Concomitant]
     Active Substance: TADALAFIL
     Indication: ERECTILE DYSFUNCTION
     Dosage: 20 MILLIGRAM
     Route: 065
  8. METHITEST [Suspect]
     Active Substance: METHYLTESTOSTERONE
     Indication: STEROID THERAPY

REACTIONS (4)
  - Delirium [Recovering/Resolving]
  - Hostility [Recovering/Resolving]
  - Aggression [Recovering/Resolving]
  - Impulsive behaviour [Recovering/Resolving]
